FAERS Safety Report 8193287-3 (Version None)
Quarter: 2012Q1

REPORT INFORMATION
  Report Type: 
  Country: None (occurrence: None)
  Receive Date: 20120308
  Receipt Date: 20120228
  Transmission Date: 20120608
  Serious: Yes (Other)
  Sender: FDA-Public Use
  Company Number: US-JNJFOC-20120302126

PATIENT

DRUGS (2)
  1. DOXORUBICIN HCL [Suspect]
     Indication: SARCOMA
     Dosage: UPTO 6 CYCLES
     Route: 042
  2. UNSPECIFED MEDICATIONS [Suspect]
     Indication: SARCOMA
     Dosage: UPTO 6 CYCLES
     Route: 065

REACTIONS (2)
  - DELUSION [None]
  - CONFUSIONAL STATE [None]
